FAERS Safety Report 12713338 (Version 1)
Quarter: 2016Q3

REPORT INFORMATION
  Report Type: Spontaneous
  Country: CA (occurrence: CA)
  Receive Date: 20160902
  Receipt Date: 20160902
  Transmission Date: 20161109
  Serious: Yes (Hospitalization)
  Sender: FDA-Public Use
  Company Number: CA-BAXTER-2016BAX045338

PATIENT
  Age: 21 Year
  Sex: Male

DRUGS (17)
  1. PROPOFOL. [Suspect]
     Active Substance: PROPOFOL
     Indication: STATUS EPILEPTICUS
     Dosage: EMULSION
     Route: 051
  2. PHENOBARBITAL. [Concomitant]
     Active Substance: PHENOBARBITAL
     Indication: PRODUCT USED FOR UNKNOWN INDICATION
     Route: 065
  3. APO-VALPROIC [Suspect]
     Active Substance: VALPROIC ACID
     Indication: STATUS EPILEPTICUS
     Route: 065
  4. IMMUNE GLOBULIN INTRAVENOUS (HUMAN) [Concomitant]
     Active Substance: HUMAN IMMUNOGLOBULIN G
     Indication: PRODUCT USED FOR UNKNOWN INDICATION
     Dosage: SOLUTION INTRAVENOUS
     Route: 065
  5. FORANE [Suspect]
     Active Substance: ISOFLURANE
     Indication: ANAESTHESIA PROCEDURE
     Dosage: LIQUID INHALATION
     Route: 065
  6. FORANE [Suspect]
     Active Substance: ISOFLURANE
     Dosage: LIQUID INHALATION
     Route: 051
  7. APO-MIDAZOLAM [Suspect]
     Active Substance: MIDAZOLAM HYDROCHLORIDE
     Dosage: LIQUID INTRAMUSCULAR
     Route: 051
  8. PROPOFOL. [Suspect]
     Active Substance: PROPOFOL
     Dosage: EMULSION
     Route: 065
  9. VIMPAT [Suspect]
     Active Substance: LACOSAMIDE
     Indication: STATUS EPILEPTICUS
     Route: 065
  10. APO-LEVETIRACETAM [Suspect]
     Active Substance: LEVETIRACETAM
     Indication: STATUS EPILEPTICUS
     Route: 051
  11. APO-LEVETIRACETAM [Suspect]
     Active Substance: LEVETIRACETAM
     Route: 065
  12. APO-MIDAZOLAM [Suspect]
     Active Substance: MIDAZOLAM HYDROCHLORIDE
     Indication: STATUS EPILEPTICUS
     Dosage: LIQUID INTRAMUSCULAR
     Route: 065
  13. PHENYTOIN. [Suspect]
     Active Substance: PHENYTOIN
     Indication: STATUS EPILEPTICUS
     Route: 051
  14. PHENYTOIN. [Suspect]
     Active Substance: PHENYTOIN
     Route: 065
  15. VIMPAT [Suspect]
     Active Substance: LACOSAMIDE
     Route: 051
  16. METHYLPREDNISOLONE NOS [Concomitant]
     Active Substance: METHYLPREDNISOLONE OR METHYLPREDNISOLONE ACETATE
     Indication: PRODUCT USED FOR UNKNOWN INDICATION
     Route: 065
  17. APO-VALPROIC [Suspect]
     Active Substance: VALPROIC ACID
     Route: 051

REACTIONS (7)
  - Intestinal ischaemia [Unknown]
  - Hypotension [Unknown]
  - Diabetes insipidus [Unknown]
  - Superinfection [Unknown]
  - Clostridium difficile infection [Unknown]
  - Systemic inflammatory response syndrome [Unknown]
  - Brain oedema [Unknown]
